FAERS Safety Report 19584009 (Version 2)
Quarter: 2021Q3

REPORT INFORMATION
  Report Type: Spontaneous
  Country: RO (occurrence: RO)
  Receive Date: 20210720
  Receipt Date: 20210729
  Transmission Date: 20211014
  Serious: Yes (Hospitalization, Other)
  Sender: FDA-Public Use
  Company Number: RO-MYLANLABS-2021M1042550

PATIENT
  Age: 22 Year
  Sex: Male

DRUGS (4)
  1. LORAZEPAM. [Concomitant]
     Active Substance: LORAZEPAM
     Indication: ANXIETY
     Dosage: 3 MILLIGRAM, QD (1MG X 3/DAY)
     Route: 065
  2. OLANZAPINE. [Suspect]
     Active Substance: OLANZAPINE
     Dosage: 15 MILLIGRAM
  3. IBUPROFEN. [Suspect]
     Active Substance: IBUPROFEN
     Indication: PRODUCT USED FOR UNKNOWN INDICATION
     Dosage: UNK
     Route: 065
  4. OLANZAPINE. [Suspect]
     Active Substance: OLANZAPINE
     Indication: PRODUCT USED FOR UNKNOWN INDICATION
     Dosage: 5 MILLIGRAM (DOSE PROGRESSIVELY INCREASED TO 15 MG OVER 7 DAYS)
     Route: 065

REACTIONS (18)
  - Blood creatine phosphokinase increased [Recovered/Resolved]
  - Leukocytosis [Recovered/Resolved]
  - Blood urea increased [Recovered/Resolved]
  - Blood bilirubin increased [Recovered/Resolved]
  - Myalgia [Recovered/Resolved]
  - Therapeutic product effect incomplete [Recovered/Resolved]
  - Erectile dysfunction [Recovered/Resolved]
  - Neutrophilia [Recovered/Resolved]
  - Chest pain [Recovered/Resolved]
  - Photophobia [Recovered/Resolved]
  - Hypotension [Recovered/Resolved]
  - Transaminases increased [Recovered/Resolved]
  - Pyrexia [Recovered/Resolved]
  - Sepsis [Recovered/Resolved]
  - Arthralgia [Recovered/Resolved]
  - Jaundice [Recovered/Resolved]
  - Arthritis [Recovered/Resolved]
  - Tachycardia [Recovered/Resolved]
